FAERS Safety Report 4503279-0 (Version None)
Quarter: 2004Q4

REPORT INFORMATION
  Report Type: 
  Country: None (occurrence: None)
  Receive Date: 20041112
  Receipt Date: 20041021
  Transmission Date: 20050328
  Serious: Yes (Death, Hospitalization)
  Sender: FDA-Public Use
  Company Number: T03-USA-01336-01

PATIENT
  Age: 75 Year
  Sex: Female
  Weight: 107.5025 kg

DRUGS (9)
  1. MEMANTINE 03C (OPEN-LABEL) (MEMANTINE) [Suspect]
     Indication: DEMENTIA ALZHEIMER'S TYPE
     Dosage: 20 MG QD PO
     Route: 048
     Dates: start: 20021207, end: 20030328
  2. MEMANTINE 03B (OPEN-LABEL) (MEMANTINE) [Suspect]
     Indication: DEMENTIA ALZHEIMER'S TYPE
     Dosage: 20 MG QD PO
     Route: 048
     Dates: start: 20020622, end: 20021206
  3. MEMANTINE 03A (OPEN-LABEL) (MEMANTINE) [Suspect]
     Indication: DEMENTIA ALZHEIMER'S TYPE
     Dosage: 2 TABLET BID PO
     Route: 048
     Dates: start: 20020524, end: 20020621
  4. SYNTHROID [Concomitant]
  5. OXYBUTYNIN [Concomitant]
  6. MULTI-VITAMINS [Concomitant]
  7. MELATONIN [Concomitant]
  8. ALOE VERA (ALOES EXTRACT) [Concomitant]
  9. ACCUPRIL [Concomitant]

REACTIONS (13)
  - AREFLEXIA [None]
  - ATRIAL FIBRILLATION [None]
  - BLOOD PRESSURE INCREASED [None]
  - CEREBRAL INFARCTION [None]
  - CEREBROVASCULAR ACCIDENT [None]
  - DILATATION ATRIAL [None]
  - FACIAL PALSY [None]
  - GENERAL PHYSICAL HEALTH DETERIORATION [None]
  - HEART RATE INCREASED [None]
  - HEMIPARESIS [None]
  - LETHARGY [None]
  - MIOSIS [None]
  - PUPIL FIXED [None]
